FAERS Safety Report 12783159 (Version 1)
Quarter: 2016Q3

REPORT INFORMATION
  Report Type: Spontaneous
  Country: US (occurrence: US)
  Receive Date: 20160927
  Receipt Date: 20160927
  Transmission Date: 20161109
  Serious: Yes (Other)
  Sender: FDA-Public Use
  Company Number: US-BEH-ZLBIGIV/05/03/USA

PATIENT
  Age: 27 Year
  Sex: Female
  Weight: 68 kg

DRUGS (6)
  1. BACLOFEN. [Concomitant]
     Active Substance: BACLOFEN
  2. IBUPROFEN. [Concomitant]
     Active Substance: IBUPROFEN
  3. PROVIGIL [Concomitant]
     Active Substance: MODAFINIL
  4. COPAXONE [Concomitant]
     Active Substance: GLATIRAMER ACETATE
  5. CARIMUNE NF [Suspect]
     Active Substance: HUMAN IMMUNOGLOBULIN G
     Indication: MULTIPLE SCLEROSIS
     Dosage: DAILY DOSE QUANTITY: 30, DAILY DOSE UNIT: G
     Route: 042
     Dates: start: 200501, end: 20050110
  6. DITROPAN [Concomitant]
     Active Substance: OXYBUTYNIN CHLORIDE

REACTIONS (4)
  - Communication disorder [Unknown]
  - Consciousness fluctuating [Recovered/Resolved]
  - Nausea [Unknown]
  - Tonic convulsion [Unknown]

NARRATIVE: CASE EVENT DATE: 20050110
